FAERS Safety Report 8923325 (Version 1)
Quarter: 2012Q4

REPORT INFORMATION
  Report Type: Spontaneous
  Country: SG (occurrence: None)
  Receive Date: 20121115
  Receipt Date: 20121115
  Transmission Date: 20130627
  Serious: Yes (Other)
  Sender: FDA-Public Use
  Company Number: DSA_60882_2012

PATIENT
  Age: 46 Year
  Sex: Female

DRUGS (4)
  1. FLAGYL [Suspect]
     Indication: PRODUCT USED FOR UNKNOWN INDICATION
     Route: 048
     Dates: start: 20121002, end: 20121003
  2. ARCOXIA [Concomitant]
  3. DAFLON [Concomitant]
  4. PARACETAMOL [Concomitant]

REACTIONS (1)
  - Abdominal pain upper [None]
